FAERS Safety Report 7059694-7 (Version None)
Quarter: 2010Q4

REPORT INFORMATION
  Report Type: 
  Country: None (occurrence: None)
  Receive Date: 20101025
  Receipt Date: 20101014
  Transmission Date: 20110411
  Serious: Yes (Life-Threatening, Hospitalization)
  Sender: FDA-Public Use
  Company Number: AT-ACTELION-A-CH2010-40634

PATIENT
  Sex: Female
  Weight: 80 kg

DRUGS (8)
  1. TRACLEER [Suspect]
     Indication: PULMONARY ARTERIAL HYPERTENSION
     Dosage: 125 MG, BID
     Route: 048
  2. LASIX [Concomitant]
  3. EUTIROX [Concomitant]
  4. DIAMOX SRC [Concomitant]
  5. ALDACTONE [Concomitant]
  6. CALCIUM W/VITAMIN D [Concomitant]
  7. FERROGRAD [Concomitant]
  8. NEXIUM [Concomitant]

REACTIONS (5)
  - ABDOMINAL HERNIA OBSTRUCTIVE [None]
  - ABDOMINAL HERNIA REPAIR [None]
  - ABDOMINAL PAIN [None]
  - GASTROINTESTINAL NECROSIS [None]
  - RESPIRATORY TRACT INFECTION [None]
